FAERS Safety Report 15419453 (Version 1)
Quarter: 2018Q3

REPORT INFORMATION
  Report Type: Spontaneous
  Country: US (occurrence: US)
  Receive Date: 20180924
  Receipt Date: 20180924
  Transmission Date: 20181010
  Serious: No
  Sender: FDA-Public Use
  Company Number: US-SA-2018SA262864

PATIENT
  Age: 65 Year
  Sex: Female
  Weight: 48.53 kg

DRUGS (1)
  1. WELCHOL [Suspect]
     Active Substance: COLESEVELAM HYDROCHLORIDE
     Indication: DETOXIFICATION
     Dosage: 1875 MG, BID
     Route: 048
     Dates: start: 2018

REACTIONS (2)
  - Off label use [Not Recovered/Not Resolved]
  - No adverse event [Not Recovered/Not Resolved]

NARRATIVE: CASE EVENT DATE: 2018
